FAERS Safety Report 15145923 (Version 1)
Quarter: 2018Q3

REPORT INFORMATION
  Report Type: Other
  Country: FR (occurrence: FR)
  Receive Date: 20180714
  Receipt Date: 20180714
  Transmission Date: 20181010
  Serious: Yes (Hospitalization, Other)
  Sender: FDA-Public Use
  Company Number: FR-MACLEODS PHARMACEUTICALS US LTD-MAC2018014950

PATIENT

DRUGS (10)
  1. LAMOTRIGINE. [Suspect]
     Active Substance: LAMOTRIGINE
     Dosage: 600 MILLIGRAM, SINGLE, TOTAL
     Route: 048
     Dates: start: 20180515, end: 20180515
  2. ELIQUIS [Suspect]
     Active Substance: APIXABAN
     Indication: POISONING DELIBERATE
     Dosage: 30 MILLIGRAM, SINGLE, TOTAL
     Route: 048
     Dates: start: 20180515, end: 20180515
  3. BISOCE 2.5 MG [Suspect]
     Active Substance: BISOPROLOL FUMARATE
     Indication: POISONING DELIBERATE
     Dosage: 15 MILLIGRAM, SINGLE, TOTAL, DIVISIBLE COATED TABLET
     Route: 048
     Dates: start: 20180515, end: 20180515
  4. DIFFU K [Suspect]
     Active Substance: POTASSIUM CHLORIDE
     Indication: POISONING DELIBERATE
     Dosage: 7800 MILLIGRAM, SINGLE, TOTAL
     Route: 048
     Dates: start: 20180515, end: 20180515
  5. KEPPRA [Suspect]
     Active Substance: LEVETIRACETAM
     Indication: POISONING DELIBERATE
     Dosage: 6000 MILLIGRAM, SINGLE, TOTAL
     Route: 048
     Dates: start: 20180515, end: 20180515
  6. PANTOPRAZOLE [Suspect]
     Active Substance: PANTOPRAZOLE
     Indication: POISONING DELIBERATE
     Dosage: 120 MILLIGRAM, SINGLE, TOTAL
     Route: 048
     Dates: start: 20180515, end: 20180515
  7. SERESTA [Suspect]
     Active Substance: OXAZEPAM
     Indication: POISONING DELIBERATE
     Dosage: 60 MILLIGRAM, SINGLE, TOTAL
     Route: 048
     Dates: start: 20180515, end: 20180515
  8. LAMOTRIGINE. [Suspect]
     Active Substance: LAMOTRIGINE
     Indication: POISONING DELIBERATE
     Dosage: 600 MILLIGRAM, SINGLE, TOTAL
     Route: 048
     Dates: start: 20180515, end: 20180515
  9. DAFALGAN [Suspect]
     Active Substance: ACETAMINOPHEN
     Indication: POISONING DELIBERATE
     Dosage: 24 GRAM, SINGLE, TOTAL
     Route: 048
     Dates: start: 20180515, end: 20180515
  10. LASILIX [Suspect]
     Active Substance: FUROSEMIDE
     Indication: POISONING DELIBERATE
     Dosage: 360 MILLIGRAM, SINGLE, TOTAL
     Route: 048
     Dates: start: 20180515, end: 20180515

REACTIONS (4)
  - Bradypnoea [Recovered/Resolved]
  - Hypotension [Recovered/Resolved]
  - Coma [Recovered/Resolved]
  - Bradycardia [Recovered/Resolved]

NARRATIVE: CASE EVENT DATE: 20180515
